FAERS Safety Report 7970666-8 (Version None)
Quarter: 2011Q4

REPORT INFORMATION
  Report Type: 
  Country: None (occurrence: None)
  Receive Date: 20111212
  Receipt Date: 20111208
  Transmission Date: 20120403
  Serious: Yes (Death, Other)
  Sender: FDA-Public Use
  Company Number: PHHY2011MX105621

PATIENT
  Age: 4 Year
  Sex: Male

DRUGS (2)
  1. AMOXICILLIN [Suspect]
     Indication: RECTAL CANCER
  2. AMOXICILLIN [Suspect]
     Indication: HAEMATOCHEZIA

REACTIONS (2)
  - SHOCK [None]
  - DEATH [None]
